FAERS Safety Report 4826807-4 (Version None)
Quarter: 2005Q4

REPORT INFORMATION
  Report Type: 
  Country: None (occurrence: None)
  Receive Date: 20051014
  Receipt Date: 20050621
  Transmission Date: 20060501
  Serious: No
  Sender: FDA-Public Use
  Company Number: 2005SP001550

PATIENT
  Sex: Male

DRUGS (6)
  1. LUNESTA [Suspect]
     Indication: INSOMNIA
     Dosage: 2 MG;HS;ORAL
     Route: 048
     Dates: start: 20050601
  2. LUNESTA [Suspect]
     Indication: PAIN
     Dosage: 2 MG;HS;ORAL
     Route: 048
     Dates: start: 20050601
  3. OXYCONTIN [Concomitant]
  4. METHADONE [Concomitant]
  5. HYDROCODONE [Concomitant]
  6. NYTOL [Concomitant]

REACTIONS (6)
  - FATIGUE [None]
  - FEELING ABNORMAL [None]
  - HANGOVER [None]
  - HEADACHE [None]
  - INSOMNIA [None]
  - NAUSEA [None]
